FAERS Safety Report 7158807-6 (Version None)
Quarter: 2010Q4

REPORT INFORMATION
  Report Type: 
  Country: None (occurrence: None)
  Receive Date: 20101214
  Receipt Date: 20100908
  Transmission Date: 20110411
  Serious: No
  Sender: FDA-Public Use
  Company Number: US-ASTRAZENECA-2010SE31267

PATIENT
  Sex: Female

DRUGS (3)
  1. CRESTOR [Suspect]
     Indication: HYPERCHOLESTEROLAEMIA
     Route: 048
     Dates: start: 20090801
  2. ATENOLOL [Concomitant]
     Indication: BLOOD PRESSURE ABNORMAL
  3. COUMADIN [Concomitant]

REACTIONS (4)
  - MUSCLE TIGHTNESS [None]
  - NECK PAIN [None]
  - NEURALGIA [None]
  - OSTEOPOROSIS [None]
